FAERS Safety Report 14810176 (Version 2)
Quarter: 2018Q3

REPORT INFORMATION
  Report Type: Report from Study
  Country: US (occurrence: US)
  Receive Date: 20180425
  Receipt Date: 20180719
  Transmission Date: 20181010
  Serious: No
  Sender: FDA-Public Use
  Company Number: US-AMGEN-USASL2018026893

PATIENT
  Age: 71 Year
  Sex: Female

DRUGS (1)
  1. REPATHA [Suspect]
     Active Substance: EVOLOCUMAB
     Indication: PRODUCT USED FOR UNKNOWN INDICATION
     Dosage: 420 MG, QMO
     Route: 065

REACTIONS (4)
  - Product storage error [Unknown]
  - Injection site pain [Unknown]
  - Influenza [Unknown]
  - Nasopharyngitis [Unknown]
